FAERS Safety Report 8544218-5 (Version None)
Quarter: 2012Q3

REPORT INFORMATION
  Report Type: 
  Country: None (occurrence: None)
  Receive Date: 20120719
  Receipt Date: 20120719
  Transmission Date: 20120928
  Serious: No
  Sender: FDA-Public Use
  Company Number: None

PATIENT
  Age: 26 Year
  Sex: Male
  Weight: 78.9259 kg

DRUGS (1)
  1. CHANTIX [Suspect]
     Indication: SMOKING CESSATION THERAPY
     Dosage: 1 PILL 2 X DAY PO
     Route: 048
     Dates: start: 20120701, end: 20120718

REACTIONS (4)
  - ARTHRALGIA [None]
  - FATIGUE [None]
  - MIDDLE INSOMNIA [None]
  - SENSORY DISTURBANCE [None]
